FAERS Safety Report 6555677-1 (Version None)
Quarter: 2010Q1

REPORT INFORMATION
  Report Type: 
  Country: None (occurrence: None)
  Receive Date: 20100128
  Receipt Date: 20100119
  Transmission Date: 20100710
  Serious: Yes (Hospitalization, Other)
  Sender: FDA-Public Use
  Company Number: FR-BRISTOL-MYERS SQUIBB COMPANY-14950000

PATIENT
  Age: 76 Year
  Sex: Male

DRUGS (4)
  1. GLUCOPHAGE [Suspect]
     Dosage: TOTAL DOSE 2550 MG PER DAY.
     Route: 048
  2. DIAMICRON [Concomitant]
  3. INSULATARD [Concomitant]
  4. KERLONE [Concomitant]

REACTIONS (5)
  - DIARRHOEA [None]
  - HYPERKALAEMIA [None]
  - LACTIC ACIDOSIS [None]
  - RENAL FAILURE ACUTE [None]
  - VOMITING [None]
